FAERS Safety Report 5649928-5 (Version None)
Quarter: 2008Q1

REPORT INFORMATION
  Report Type: 
  Country: None (occurrence: None)
  Receive Date: 20080304
  Receipt Date: 20080220
  Transmission Date: 20080703
  Serious: Yes (Death, Hospitalization)
  Sender: FDA-Public Use
  Company Number: DE-BAYER-200813650GPV

PATIENT
  Age: 58 Year
  Sex: Male

DRUGS (74)
  1. CIPRO [Suspect]
     Indication: INFECTION
     Dosage: UNIT DOSE: 400 MG
     Route: 048
     Dates: start: 20031004, end: 20031017
  2. CIPRO [Suspect]
     Dosage: UNIT DOSE: 400 MG
     Route: 048
     Dates: start: 20031026, end: 20031028
  3. DICLOFENAC SODIUM [Suspect]
     Indication: PAIN
     Route: 048
     Dates: start: 20031017, end: 20031018
  4. VANCOMYCIN [Suspect]
     Indication: INFLAMMATION
     Route: 042
     Dates: start: 20031017, end: 20031022
  5. HEPARIN [Suspect]
     Indication: THROMBOSIS PROPHYLAXIS
     Route: 042
     Dates: start: 20031003, end: 20031124
  6. SAB SIMPLEX [Suspect]
     Indication: CONSTIPATION
     Dosage: UNIT DOSE: 20 ML
     Route: 048
     Dates: start: 20031018, end: 20031124
  7. SAB SIMPLEX [Suspect]
     Dosage: UNIT DOSE: 20 ML
     Route: 048
     Dates: start: 20031005, end: 20031015
  8. DILATREND [Suspect]
     Indication: CARDIAC FAILURE
     Dosage: TOTAL DAILY DOSE: 12.5 MG
     Route: 048
     Dates: start: 20031012, end: 20031124
  9. DILATREND [Suspect]
     Dosage: TOTAL DAILY DOSE: 6.25 MG
     Route: 048
     Dates: start: 20031008, end: 20031010
  10. NEOMYCIN [Suspect]
     Indication: GASTROINTESTINAL DISORDER
     Dosage: TOTAL DAILY DOSE: 12 G
     Route: 048
     Dates: start: 20031011, end: 20031124
  11. KLACID [Suspect]
     Indication: INFECTION
     Dosage: TOTAL DAILY DOSE: 1000 MG
     Route: 048
     Dates: start: 20031015, end: 20031124
  12. PANTOZOL [Suspect]
     Indication: PROPHYLAXIS
     Dosage: TOTAL DAILY DOSE: 80 MG
     Route: 048
     Dates: start: 20031016, end: 20031124
  13. ZIENAM [Suspect]
     Indication: INFLAMMATION
     Dosage: TOTAL DAILY DOSE: 1500 MG
     Route: 048
     Dates: start: 20031017, end: 20031028
  14. COLCHICIN [Suspect]
     Indication: PERICARDIAL EFFUSION
     Route: 048
     Dates: start: 20031020, end: 20031029
  15. COLCHICIN [Suspect]
     Route: 048
     Dates: start: 20031017, end: 20031018
  16. PROTAMIN [Concomitant]
     Indication: PROCOAGULANT THERAPY
     Route: 042
     Dates: start: 20031003, end: 20031003
  17. ROCURONIUM BROMIDE [Concomitant]
     Indication: DRUG USE FOR UNKNOWN INDICATION
     Route: 042
     Dates: start: 20031003, end: 20031003
  18. PPSB [Concomitant]
     Indication: PROCOAGULANT THERAPY
     Route: 042
     Dates: start: 20031003, end: 20031003
  19. CEFAZOLIN SODIUM [Concomitant]
     Indication: POSTOPERATIVE CARE
     Route: 042
     Dates: start: 20031002, end: 20031004
  20. RED BLOOD CELLS [Concomitant]
     Indication: DRUG USE FOR UNKNOWN INDICATION
     Route: 042
     Dates: start: 20031003, end: 20031004
  21. NITROGLYCERIN [Concomitant]
     Indication: CARDIAC FAILURE
     Route: 042
     Dates: start: 20031002, end: 20031004
  22. DISOPRIVAN [Concomitant]
     Indication: SEDATION
     Route: 042
     Dates: start: 20031003, end: 20031005
  23. GFP (LIPIDS, GLUCOSE, PROTEINS) [Concomitant]
     Indication: SUPPLEMENTATION THERAPY
     Route: 042
     Dates: start: 20031003, end: 20031004
  24. GFP (LIPIDS, GLUCOSE, PROTEINS) [Concomitant]
     Route: 042
     Dates: start: 20031006, end: 20031006
  25. EPINEPHRINE [Concomitant]
     Indication: INTRAOPERATIVE CARE
     Route: 042
     Dates: start: 20031003, end: 20031009
  26. RINGER'S [Concomitant]
     Indication: FLUID REPLACEMENT
     Route: 042
     Dates: start: 20031002, end: 20031010
  27. CORDAREX [Concomitant]
     Indication: CARDIAC FAILURE
     Route: 042
     Dates: start: 20031003, end: 20031011
  28. CORDAREX [Concomitant]
     Dosage: UNIT DOSE: 200 MG
     Route: 048
     Dates: start: 20031012, end: 20031014
  29. NORADRENALIN [Concomitant]
     Indication: INTRAOPERATIVE CARE
     Route: 042
     Dates: start: 20031011, end: 20031011
  30. NORADRENALIN [Concomitant]
     Route: 042
     Dates: start: 20031003, end: 20031007
  31. PANTOZOL [Concomitant]
     Dosage: UNIT DOSE: 40 MG
     Route: 042
     Dates: start: 20031003, end: 20031014
  32. COROTROP [Concomitant]
     Indication: CARDIAC FAILURE
     Route: 042
     Dates: start: 20031003, end: 20031015
  33. ULCOGANT [Concomitant]
     Indication: PROPHYLAXIS
     Route: 048
     Dates: start: 20031002, end: 20031015
  34. MAGNESIUM SULFATE [Concomitant]
     Indication: SUPPLEMENTATION THERAPY
     Dosage: UNIT DOSE: 50 ML
     Route: 042
     Dates: start: 20031002, end: 20031015
  35. FLUIMUCIL [Concomitant]
     Indication: SECRETION DISCHARGE
     Route: 042
     Dates: start: 20031002, end: 20031017
  36. INSULIN [Concomitant]
     Indication: DIABETES MELLITUS
     Route: 042
     Dates: start: 20031003, end: 20031023
  37. DIPIDOLOR [Concomitant]
     Indication: PAIN
     Route: 042
     Dates: start: 20031029, end: 20031029
  38. DIPIDOLOR [Concomitant]
     Route: 042
     Dates: end: 20031015
  39. GLUCOSE [Concomitant]
     Indication: SUPPLEMENTATION THERAPY
     Route: 042
     Dates: start: 20031026, end: 20031029
  40. GLUCOSE [Concomitant]
     Route: 042
     Dates: end: 20031015
  41. TAZOBACTAM [Concomitant]
     Indication: DRUG USE FOR UNKNOWN INDICATION
     Dosage: UNIT DOSE: 4.5 MG
     Route: 042
     Dates: start: 20031004, end: 20031015
  42. LACTULOSE [Concomitant]
     Indication: HEPATIC FAILURE
     Dosage: UNIT DOSE: 20 ML
     Route: 048
     Dates: start: 20031004, end: 20031026
  43. MAGNESIUM [Concomitant]
     Indication: SUPPLEMENTATION THERAPY
     Route: 042
     Dates: start: 20031005, end: 20031005
  44. CLINIMIX [Concomitant]
     Indication: PARENTERAL NUTRITION
     Route: 042
     Dates: start: 20031005, end: 20031008
  45. AMINO-HEPAR [Concomitant]
     Indication: PARENTERAL NUTRITION
     Route: 048
     Dates: start: 20031005, end: 20031011
  46. PASPERTIN [Concomitant]
     Indication: VOMITING
     Dosage: UNIT DOSE: 20 MG
     Route: 042
     Dates: start: 20031005, end: 20031015
  47. PROSTIGMIN BROMIDE [Concomitant]
     Indication: HYPOTONIA
     Route: 042
     Dates: start: 20031007, end: 20031007
  48. PK MERZ [Concomitant]
     Indication: ACUTE PSYCHOSIS
     Route: 048
     Dates: start: 20031007, end: 20031009
  49. AMPHO-B [Concomitant]
     Indication: ULCER
     Dosage: UNIT DOSE: 10 MG
     Route: 055
     Dates: start: 20031007, end: 20031015
  50. FLUIMUCIL [Concomitant]
     Dosage: UNIT DOSE: 150 MG
     Route: 055
     Dates: start: 20031007, end: 20031015
  51. ANEXATE TAB [Concomitant]
     Indication: DIAGNOSTIC PROCEDURE
     Route: 042
     Dates: start: 20031009, end: 20031009
  52. REFOBACIN [Concomitant]
     Indication: EXOPHTHALMOS
     Route: 061
     Dates: start: 20031009, end: 20031024
  53. BEPANTHEN [Concomitant]
     Indication: EXOPHTHALMOS
     Route: 061
     Dates: start: 20031009, end: 20031024
  54. NEOMYCIN [Concomitant]
     Dosage: UNIT DOSE: 2 G
     Route: 048
     Dates: start: 20031011, end: 20031124
  55. GASTRIC LIGHT DIET NOS [Concomitant]
     Indication: DRUG USE FOR UNKNOWN INDICATION
     Route: 048
     Dates: start: 20031012, end: 20031015
  56. HALDOL [Concomitant]
     Indication: RESTLESSNESS
     Route: 042
     Dates: start: 20031014, end: 20031014
  57. TAVOR [Concomitant]
     Indication: RESTLESSNESS
     Route: 042
     Dates: start: 20031014, end: 20031014
  58. CLONT [Concomitant]
     Indication: INFECTION
     Dosage: UNIT DOSE: 500 MG
     Route: 042
     Dates: start: 20031015, end: 20031016
  59. CLONT [Concomitant]
     Dosage: UNIT DOSE: 500 MG
     Route: 042
     Dates: start: 20031028, end: 20031124
  60. AMPICILLIN [Concomitant]
     Indication: DRUG USE FOR UNKNOWN INDICATION
     Dosage: UNIT DOSE: 2 G
     Route: 042
     Dates: start: 20031014, end: 20031015
  61. AMINOFUSION - HEPAR - G70 PLUS ADDITION [Concomitant]
     Indication: SUPPLEMENTATION THERAPY
     Route: 042
     Dates: start: 20031016, end: 20031023
  62. CORNEREGEL [Concomitant]
     Indication: CONJUNCTIVAL HAEMORRHAGE
     Route: 061
     Dates: start: 20031018, end: 20031024
  63. SOLU DECORTIN H [Concomitant]
     Indication: DRUG USE FOR UNKNOWN INDICATION
     Route: 042
     Dates: start: 20031019, end: 20031019
  64. VIOXX [Concomitant]
     Indication: PAIN
     Route: 048
     Dates: start: 20031019, end: 20031020
  65. FORTIMEL [Concomitant]
     Indication: PARENTERAL NUTRITION
     Route: 042
     Dates: start: 20031028, end: 20031124
  66. GELAFUNDIN [Concomitant]
     Indication: SUPPLEMENTATION THERAPY
     Route: 042
     Dates: start: 20031029, end: 20031029
  67. NUTRI TWIN [Concomitant]
     Indication: PARENTERAL NUTRITION
     Route: 042
     Dates: start: 20031030, end: 20031124
  68. ALBUMIN (HUMAN) [Concomitant]
     Indication: SUPPLEMENTATION THERAPY
     Route: 042
     Dates: start: 20031030, end: 20031030
  69. HAES [Concomitant]
     Indication: SUPPLEMENTATION THERAPY
     Route: 042
     Dates: start: 20031030, end: 20031030
  70. DOPAMINE HYDROCHLORIDE [Concomitant]
     Indication: CARDIOVASCULAR DISORDER
     Route: 042
     Dates: start: 20031030, end: 20031124
  71. LIPOVENOES [Concomitant]
     Indication: PARENTERAL NUTRITION
     Route: 042
     Dates: start: 20031030, end: 20031124
  72. ADDEL N [Concomitant]
     Indication: SUPPLEMENTATION THERAPY
     Route: 042
     Dates: start: 20031030, end: 20031124
  73. SOLUVIT [Concomitant]
     Indication: SUPPLEMENTATION THERAPY
     Route: 042
     Dates: start: 20031030, end: 20031124
  74. VITALIPID [Concomitant]
     Indication: PARENTERAL NUTRITION
     Route: 042
     Dates: start: 20031030, end: 20031124

REACTIONS (6)
  - BLISTER [None]
  - ERYTHEMA [None]
  - LIP EROSION [None]
  - ORAL MUCOSA EROSION [None]
  - PYREXIA [None]
  - STEVENS-JOHNSON SYNDROME [None]
